FAERS Safety Report 16287958 (Version 3)
Quarter: 2019Q3

REPORT INFORMATION
  Report Type: Spontaneous
  Country: US (occurrence: US)
  Receive Date: 20190508
  Receipt Date: 20190827
  Transmission Date: 20191004
  Serious: No
  Sender: FDA-Public Use
  Company Number: PHEH2019US019303

PATIENT
  Sex: Female

DRUGS (2)
  1. AFINITOR [Suspect]
     Active Substance: EVEROLIMUS
     Indication: ENDOMETRIAL NEOPLASM
     Dosage: 10 MG, QD
     Route: 048
  2. AFINITOR [Suspect]
     Active Substance: EVEROLIMUS
     Dosage: 10 MG, QD
     Route: 048

REACTIONS (11)
  - Product use in unapproved indication [Unknown]
  - Onychoclasis [Unknown]
  - Epistaxis [Unknown]
  - Urinary tract pain [Unknown]
  - Blood potassium decreased [Unknown]
  - Nail disorder [Unknown]
  - Diarrhoea [Unknown]
  - Joint swelling [Unknown]
  - Pigmentation disorder [Unknown]
  - Urinary tract infection [Unknown]
  - Acne [Unknown]
